FAERS Safety Report 5974935-2 (Version None)
Quarter: 2008Q4

REPORT INFORMATION
  Report Type: 
  Country: None (occurrence: None)
  Receive Date: 20081202
  Receipt Date: 20081120
  Transmission Date: 20090506
  Serious: Yes (Other)
  Sender: FDA-Public Use
  Company Number: US-RANBAXY-2008US-19526

PATIENT

DRUGS (2)
  1. ISOTRETINOIN [Suspect]
     Indication: ONCOLOGIC COMPLICATION
     Dosage: 20 MG, UNK
     Route: 048
  2. CLARAVIS [Suspect]
     Indication: DRUG USE FOR UNKNOWN INDICATION
     Dosage: UNK MG, UNK
     Route: 048

REACTIONS (2)
  - OFF LABEL USE [None]
  - TRANSPLANT [None]
